FAERS Safety Report 12546258 (Version 1)
Quarter: 2016Q3

REPORT INFORMATION
  Report Type: Report from Study
  Country: PK (occurrence: PK)
  Receive Date: 20160711
  Receipt Date: 20160711
  Transmission Date: 20161109
  Serious: Yes (Other)
  Sender: FDA-Public Use
  Company Number: PK-NOVOPROD-499202

PATIENT
  Age: 50 Year
  Sex: Male

DRUGS (2)
  1. VICTOZA [Suspect]
     Active Substance: LIRAGLUTIDE
     Indication: GLUCOSE TOLERANCE IMPAIRED
     Dosage: 0.6 MG, QD
     Route: 065
     Dates: start: 20160531, end: 201606
  2. VICTOZA [Suspect]
     Active Substance: LIRAGLUTIDE
     Indication: OBESITY

REACTIONS (5)
  - Abdominal discomfort [Unknown]
  - Vomiting [Unknown]
  - Dyspepsia [Unknown]
  - Off label use [Unknown]
  - Nausea [Unknown]

NARRATIVE: CASE EVENT DATE: 20160531
